FAERS Safety Report 22761417 (Version 3)
Quarter: 2023Q4

REPORT INFORMATION
  Report Type: Spontaneous
  Country: US (occurrence: US)
  Receive Date: 20230728
  Receipt Date: 20231128
  Transmission Date: 20240110
  Serious: No
  Sender: FDA-Public Use
  Company Number: US-PFIZER INC-PV202300126139

PATIENT
  Age: 88 Year
  Sex: Male
  Weight: 83.9 kg

DRUGS (1)
  1. BOSULIF [Suspect]
     Active Substance: BOSUTINIB MONOHYDRATE
     Indication: Chronic myeloid leukaemia
     Dosage: 200 MG, (TAKE 2 TABLETS (200 MG TOTAL) DAILY)
     Route: 048

REACTIONS (2)
  - Hypoacusis [Unknown]
  - Abdominal discomfort [Unknown]
